FAERS Safety Report 13066387 (Version 1)
Quarter: 2016Q4

REPORT INFORMATION
  Report Type: Report from Study
  Country: US (occurrence: US)
  Receive Date: 20161227
  Receipt Date: 20161227
  Transmission Date: 20170207
  Serious: Yes (Other)
  Sender: FDA-Public Use
  Company Number: US-MALLINCKRODT-T201606633

PATIENT
  Sex: Female

DRUGS (1)
  1. REPOSITORY CORTICOTROPIN INJECTION [Suspect]
     Active Substance: CORTICOTROPIN
     Indication: IGA NEPHROPATHY
     Dosage: 40 UNITS / .5 ML, 2 TIMES PER WEEK, SUNDAY AND WEDNESDAY
     Route: 058
     Dates: start: 20151118

REACTIONS (2)
  - Device damage [Unknown]
  - Facial paralysis [Recovering/Resolving]

NARRATIVE: CASE EVENT DATE: 2016
